FAERS Safety Report 18328975 (Version 1)
Quarter: 2020Q3

REPORT INFORMATION
  Report Type: Spontaneous
  Country: FR (occurrence: FR)
  Receive Date: 20200930
  Receipt Date: 20200930
  Transmission Date: 20201103
  Serious: Yes (Hospitalization)
  Sender: FDA-Public Use
  Company Number: FR-ELI_LILLY_AND_COMPANY-FR202009009102

PATIENT
  Age: 80 Year
  Sex: Female
  Weight: 71 kg

DRUGS (2)
  1. INSULATARD [INSULIN ISOPHANE PORCINE] [Suspect]
     Active Substance: INSULIN PORK\INSULIN PURIFIED PORK
     Indication: DIABETES MELLITUS
     Dosage: UNK, UNKNOWN
     Route: 058
     Dates: end: 20200523
  2. HUMALOG [Suspect]
     Active Substance: INSULIN LISPRO
     Indication: DIABETES MELLITUS
     Dosage: UNK UNK, UNKNOWN
     Route: 058
     Dates: end: 20200523

REACTIONS (2)
  - Incorrect dose administered [Recovered/Resolved]
  - Diabetic hyperglycaemic coma [Recovered/Resolved]

NARRATIVE: CASE EVENT DATE: 20200523
